FAERS Safety Report 24083825 (Version 1)
Quarter: 2024Q3

REPORT INFORMATION
  Report Type: Spontaneous
  Country: US (occurrence: None)
  Receive Date: 20240711
  Receipt Date: 20240711
  Transmission Date: 20241016
  Serious: Yes (Other)
  Sender: Public
  Company Number: None

PATIENT
  Age: 53 Year
  Sex: Female
  Weight: 104.33 kg

DRUGS (1)
  1. ZEPBOUND [Suspect]
     Active Substance: TIRZEPATIDE
     Indication: Obesity
     Dosage: OTHER QUANTITY : 1 INJECTIONS ;?FREQUENCY : WEEKLY;?
     Route: 058
     Dates: start: 20240412

REACTIONS (4)
  - Injection site mass [None]
  - Injection site erythema [None]
  - Injection site discomfort [None]
  - Injection site pain [None]

NARRATIVE: CASE EVENT DATE: 20240703
